FAERS Safety Report 19234482 (Version 2)
Quarter: 2021Q2

REPORT INFORMATION
  Report Type: Spontaneous
  Country: US (occurrence: US)
  Receive Date: 20210508
  Receipt Date: 20210606
  Transmission Date: 20210717
  Serious: No
  Sender: FDA-Public Use
  Company Number: US-ORGANON-O2105USA000250

PATIENT
  Age: 31 Year
  Sex: Female
  Weight: 95.25 kg

DRUGS (2)
  1. NEXPLANON [Suspect]
     Active Substance: ETONOGESTREL
     Dosage: 1 IMPLANT 3 YEARS,  LEFT UPPER ARM
     Route: 059
     Dates: start: 20210119
  2. NEXPLANON [Suspect]
     Active Substance: ETONOGESTREL
     Dosage: 1 IMPLANT
     Route: 059
     Dates: end: 20210119

REACTIONS (6)
  - Nausea [Unknown]
  - Polymenorrhoea [Unknown]
  - Headache [Unknown]
  - Complication associated with device [Not Recovered/Not Resolved]
  - Heavy menstrual bleeding [Unknown]
  - Complication of device removal [Not Recovered/Not Resolved]

NARRATIVE: CASE EVENT DATE: 20210427
